FAERS Safety Report 7110314-2 (Version None)
Quarter: 2010Q4

REPORT INFORMATION
  Report Type: 
  Country: None (occurrence: None)
  Receive Date: 20101118
  Receipt Date: 20100823
  Transmission Date: 20110411
  Serious: No
  Sender: FDA-Public Use
  Company Number: A0878184A

PATIENT
  Age: 50 Year
  Sex: Female

DRUGS (1)
  1. COREG CR [Suspect]
     Dosage: 40MG UNKNOWN
     Dates: start: 20100125

REACTIONS (1)
  - NAUSEA [None]
